FAERS Safety Report 8880987 (Version 1)
Quarter: 2012Q4

REPORT INFORMATION
  Report Type: 
  Country: US (occurrence: US)
  Receive Date: 20121101
  Receipt Date: 20121101
  Transmission Date: 20130627
  Serious: Yes (Other)
  Sender: FDA-Public Use
  Company Number: US-PFIZER INC-2012267984

PATIENT
  Age: 64 Year
  Sex: Female
  Weight: 47.17 kg

DRUGS (3)
  1. PREMARIN [Suspect]
     Indication: HORMONE THERAPY
     Dosage: 1.25 mg, daily
     Route: 048
  2. WELLBUTRIN [Concomitant]
     Indication: DEPRESSION
     Dosage: 300 mg, 1x/day
  3. AMBIEN [Concomitant]
     Indication: SLEEP PROBLEM
     Dosage: 10 mg, daily

REACTIONS (1)
  - Hypertension [Not Recovered/Not Resolved]
